FAERS Safety Report 11448686 (Version 1)
Quarter: 2015Q3

REPORT INFORMATION
  Report Type: Spontaneous
  Country: DE (occurrence: DE)
  Receive Date: 20150902
  Receipt Date: 20150902
  Transmission Date: 20151125
  Serious: Yes (Life-Threatening)
  Sender: FDA-Public Use
  Company Number: DE-BAYER-2015-409764

PATIENT
  Age: 44 Year
  Sex: Female
  Weight: 60 kg

DRUGS (1)
  1. MIRENA [Suspect]
     Active Substance: LEVONORGESTREL
     Indication: CONTRACEPTION
     Dosage: 20 MCG/24HR, CONT
     Route: 015
     Dates: start: 20140627, end: 20150706

REACTIONS (20)
  - Vertigo [Recovering/Resolving]
  - Stress [Recovering/Resolving]
  - Depressed mood [Recovering/Resolving]
  - Blood potassium decreased [Recovering/Resolving]
  - Anger [Recovering/Resolving]
  - Dizziness [Recovering/Resolving]
  - Skin fragility [Recovering/Resolving]
  - Suicidal ideation [Recovering/Resolving]
  - Visual impairment [Recovering/Resolving]
  - Fear [Recovering/Resolving]
  - Loss of libido [Recovering/Resolving]
  - Vision blurred [Recovering/Resolving]
  - Arthralgia [Recovering/Resolving]
  - Panic attack [Recovering/Resolving]
  - Muscle spasms [Recovering/Resolving]
  - Aggression [Recovering/Resolving]
  - Palpitations [Recovering/Resolving]
  - Nightmare [Recovering/Resolving]
  - Nuchal rigidity [Recovering/Resolving]
  - Quality of life decreased [Recovering/Resolving]

NARRATIVE: CASE EVENT DATE: 20150702
